FAERS Safety Report 7040644-4 (Version None)
Quarter: 2010Q4

REPORT INFORMATION
  Report Type: 
  Country: None (occurrence: None)
  Receive Date: 20101013
  Receipt Date: 20101011
  Transmission Date: 20110411
  Serious: Yes (Hospitalization)
  Sender: FDA-Public Use
  Company Number: US-AMGEN-KDL444743

PATIENT
  Sex: Female

DRUGS (2)
  1. ENBREL [Suspect]
     Indication: PSORIATIC ARTHROPATHY
     Route: 058
     Dates: start: 20050901
  2. ENBREL [Suspect]
     Indication: PSORIASIS

REACTIONS (5)
  - CLOSTRIDIAL INFECTION [None]
  - HIATUS HERNIA [None]
  - PSORIASIS [None]
  - PSORIATIC ARTHROPATHY [None]
  - SURGICAL FAILURE [None]
